FAERS Safety Report 6400690-8 (Version None)
Quarter: 2009Q4

REPORT INFORMATION
  Report Type: 
  Country: None (occurrence: None)
  Receive Date: 20091014
  Receipt Date: 20091005
  Transmission Date: 20100525
  Serious: Yes (Other)
  Sender: FDA-Public Use
  Company Number: AU-PFIZER INC-2009258393

PATIENT
  Age: 53 Year

DRUGS (1)
  1. CHAMPIX [Suspect]

REACTIONS (5)
  - ABNORMAL BEHAVIOUR [None]
  - ALTERED STATE OF CONSCIOUSNESS [None]
  - CONTUSION [None]
  - MOOD ALTERED [None]
  - SELF INJURIOUS BEHAVIOUR [None]
